FAERS Safety Report 7012396-5 (Version None)
Quarter: 2010Q3

REPORT INFORMATION
  Report Type: 
  Country: None (occurrence: None)
  Receive Date: 20100924
  Receipt Date: 20100920
  Transmission Date: 20110219
  Serious: Yes (Other)
  Sender: FDA-Public Use
  Company Number: NO-ALLERGAN-1012132US

PATIENT

DRUGS (1)
  1. FML [Suspect]
     Indication: LASER THERAPY

REACTIONS (1)
  - PLATELET COUNT DECREASED [None]
